FAERS Safety Report 10147396 (Version 1)
Quarter: 2014Q2

REPORT INFORMATION
  Report Type: Spontaneous
  Country: US (occurrence: US)
  Receive Date: 20140501
  Receipt Date: 20140501
  Transmission Date: 20141212
  Serious: Yes (Hospitalization)
  Sender: FDA-Public Use
  Company Number: US-MPIJNJ-2014MPI001250

PATIENT
  Age: 67 Year
  Sex: Female

DRUGS (2)
  1. VELCADE [Suspect]
     Indication: PLASMA CELL MYELOMA
     Dosage: UNK, Q3WEEKS
     Route: 042
  2. DEXAMETHASONE [Suspect]
     Dosage: UNK

REACTIONS (3)
  - Psychotic disorder [Recovered/Resolved]
  - Diabetes mellitus [Recovered/Resolved]
  - Gait disturbance [Recovered/Resolved]
